FAERS Safety Report 19082038 (Version 1)
Quarter: 2021Q1

REPORT INFORMATION
  Report Type: Spontaneous
  Country: US (occurrence: US)
  Receive Date: 20210331
  Receipt Date: 20210331
  Transmission Date: 20210420
  Serious: Yes (Life-Threatening)
  Sender: FDA-Public Use
  Company Number: None

PATIENT
  Age: 24 Year
  Sex: Male
  Weight: 58.5 kg

DRUGS (1)
  1. CLONAZOLAM [Suspect]
     Active Substance: CLONAZOLAM
     Indication: DRUG DEPENDENCE
     Route: 048
     Dates: start: 20210327

REACTIONS (3)
  - Aggression [None]
  - Physical assault [None]
  - Drug abuse [None]

NARRATIVE: CASE EVENT DATE: 20210327
